FAERS Safety Report 7474370-4 (Version None)
Quarter: 2011Q2

REPORT INFORMATION
  Report Type: 
  Country: None (occurrence: None)
  Receive Date: 20110511
  Receipt Date: 20101018
  Transmission Date: 20111010
  Serious: No
  Sender: FDA-Public Use
  Company Number: US-AMGEN-TCS431557

PATIENT
  Age: 45 Year
  Sex: Female
  Weight: 62.268 kg

DRUGS (8)
  1. HYDROXYCHLOROQUINE [Concomitant]
     Indication: RHEUMATOID ARTHRITIS
  2. MELPHALAN HYDROCHLORIDE [Concomitant]
     Indication: RHEUMATOID ARTHRITIS
     Dosage: UNK
     Route: 048
     Dates: start: 20100301
  3. FOLIC ACID [Concomitant]
     Indication: RHEUMATOID ARTHRITIS
     Dosage: 1 MG, QD
     Dates: start: 20100301
  4. ENBREL [Suspect]
     Indication: RHEUMATOID ARTHRITIS
     Dosage: 50 MG, QWK
     Route: 058
     Dates: start: 20100730
  5. SULFASALAZINE [Concomitant]
     Indication: RHEUMATOID ARTHRITIS
  6. TRAMADOL HYDROCHLORIDE [Concomitant]
     Indication: PAIN
     Dosage: 50 MG, PRN
     Route: 048
  7. METHOTREXATE [Concomitant]
     Indication: RHEUMATOID ARTHRITIS
     Dosage: 25 MG, QWK
     Route: 048
     Dates: start: 20100301
  8. NORTRIPTYLINE [Concomitant]
     Indication: PAIN
     Dosage: 10 MG, PRN
     Route: 048

REACTIONS (6)
  - INJECTION SITE WARMTH [None]
  - INJECTION SITE SWELLING [None]
  - INJECTION SITE RASH [None]
  - INJECTION SITE PRURITUS [None]
  - INJECTION SITE INDURATION [None]
  - INJECTION SITE ERYTHEMA [None]
